FAERS Safety Report 7883736-X (Version None)
Quarter: 2011Q4

REPORT INFORMATION
  Report Type: 
  Country: None (occurrence: None)
  Receive Date: 20111102
  Receipt Date: 20111028
  Transmission Date: 20120403
  Serious: Yes (Other)
  Sender: FDA-Public Use
  Company Number: FR-ABBOTT-11P-056-0869604-00

PATIENT
  Age: 29 Year
  Sex: Male

DRUGS (4)
  1. DIHYDROERGOTAMINE MESYLATE [Suspect]
     Indication: MEDICATION ERROR
     Route: 048
     Dates: start: 20111019, end: 20111019
  2. URBANYL [Suspect]
     Indication: MEDICATION ERROR
     Route: 048
     Dates: start: 20111019, end: 20111019
  3. TRIMETAZIDINE HYDROCHLORIDE [Suspect]
     Indication: MEDICATION ERROR
     Dosage: EXTENDED-RELEASE, ONCE
     Route: 048
     Dates: start: 20111019, end: 20111019
  4. DEPAKENE [Suspect]
     Indication: MEDICATION ERROR
     Dosage: EXTENDED-RELEASE, ONCE
     Route: 048
     Dates: start: 20111019, end: 20111019

REACTIONS (3)
  - DRUG DISPENSING ERROR [None]
  - MEDICATION ERROR [None]
  - AGITATION [None]
